FAERS Safety Report 8085547-1 (Version None)
Quarter: 2012Q1

REPORT INFORMATION
  Report Type: 
  Country: None (occurrence: None)
  Receive Date: 20120128
  Receipt Date: 20110425
  Transmission Date: 20120608
  Serious: No
  Sender: FDA-Public Use
  Company Number: US-ABBOTT-11P-163-0713390-00

PATIENT
  Sex: Female
  Weight: 77.18 kg

DRUGS (12)
  1. BENICAR [Concomitant]
     Indication: HYPERTENSION
  2. METHOTREXATE [Concomitant]
     Route: 048
  3. ASPIRIN [Concomitant]
     Indication: PRODUCT USED FOR UNKNOWN INDICATION
     Route: 048
  4. AMLODIPINE [Concomitant]
     Indication: HYPERTENSION
  5. PREDNISONE TAB [Concomitant]
     Indication: RHEUMATOID ARTHRITIS
  6. VITAMIN D [Concomitant]
     Route: 048
  7. ZULTAN [Concomitant]
     Indication: PRODUCT USED FOR UNKNOWN INDICATION
     Route: 047
  8. FOLIC ACID [Concomitant]
     Indication: RHEUMATOID ARTHRITIS
  9. HUMIRA [Suspect]
     Indication: RHEUMATOID ARTHRITIS
  10. HUMIRA [Suspect]
     Dosage: 40MG 1 IN 2 WEEKS PRE-FILLED SYRINGE
     Route: 058
  11. VITAMIN D [Concomitant]
     Indication: PRODUCT USED FOR UNKNOWN INDICATION
     Route: 048
  12. METHOTREXATE [Concomitant]
     Indication: RHEUMATOID ARTHRITIS
     Route: 050

REACTIONS (3)
  - URINARY TRACT INFECTION [None]
  - ARTHRALGIA [None]
  - DRUG INEFFECTIVE [None]
